FAERS Safety Report 17579716 (Version 3)
Quarter: 2020Q2

REPORT INFORMATION
  Report Type: Spontaneous
  Country: US (occurrence: US)
  Receive Date: 20200325
  Receipt Date: 20200626
  Transmission Date: 20200713
  Serious: No
  Sender: FDA-Public Use
  Company Number: US-JNJFOC-20200244228

PATIENT
  Sex: Female

DRUGS (4)
  1. ERDAFITINIB. [Suspect]
     Active Substance: ERDAFITINIB
     Dosage: STOPPED FOR 2 MONTHS AND THEN REDUCED DOSE TO 1 PILL PER DAY ON 26-MAY-2020 (THERAPY STILL ONGOING)
     Route: 048
     Dates: start: 20200526
  2. GABAPENTIN. [Concomitant]
     Active Substance: GABAPENTIN
     Indication: NODULE
  3. ERDAFITINIB. [Suspect]
     Active Substance: ERDAFITINIB
     Indication: PRODUCT USED FOR UNKNOWN INDICATION
     Dosage: 2  5 MG TABLETS DAILY
     Route: 048
     Dates: start: 20200208, end: 20200215
  4. GABAPENTIN. [Concomitant]
     Active Substance: GABAPENTIN
     Indication: NEUROPATHY PERIPHERAL
     Dates: start: 20200301

REACTIONS (4)
  - Muscle spasms [Unknown]
  - Joint swelling [Unknown]
  - Arthralgia [Unknown]
  - Peripheral swelling [Unknown]
